FAERS Safety Report 22208989 (Version 1)
Quarter: 2023Q2

REPORT INFORMATION
  Report Type: Spontaneous
  Country: KR (occurrence: KR)
  Receive Date: 20230413
  Receipt Date: 20230413
  Transmission Date: 20230722
  Serious: Yes (Hospitalization, Other)
  Sender: FDA-Public Use
  Company Number: KR-MYLANLABS-2023M1038220

PATIENT
  Age: 53 Year
  Sex: Male

DRUGS (5)
  1. CELEBREX [Suspect]
     Active Substance: CELECOXIB
     Indication: Pain
     Dosage: 1 DOSAGE FORM, QD
     Route: 048
     Dates: start: 20191211
  2. GABAPENTIN [Suspect]
     Active Substance: GABAPENTIN
     Indication: Prophylaxis
     Dosage: 1 DOSAGE FORM, QD
     Route: 048
     Dates: start: 20191211
  3. AFLOQUALONE [Suspect]
     Active Substance: AFLOQUALONE
     Indication: Muscle disorder
     Dosage: 20 MILLIGRAM, QD
     Route: 048
     Dates: start: 20191211
  4. ACETAMINOPHEN\TRAMADOL HYDROCHLORIDE [Suspect]
     Active Substance: ACETAMINOPHEN\TRAMADOL HYDROCHLORIDE
     Indication: Pain
     Dosage: 1 DOSAGE FORM, QD
     Route: 048
     Dates: start: 20191211
  5. MOSAPRIDE CITRATE DIHYDRATE [Suspect]
     Active Substance: MOSAPRIDE CITRATE DIHYDRATE
     Indication: Gastric ulcer
     Dosage: 1 DOSAGE FORM, QD
     Route: 048
     Dates: start: 20191211

REACTIONS (2)
  - Drug reaction with eosinophilia and systemic symptoms [Recovered/Resolved]
  - Off label use [Unknown]

NARRATIVE: CASE EVENT DATE: 20191211
